FAERS Safety Report 7468333-2 (Version None)
Quarter: 2011Q2

REPORT INFORMATION
  Report Type: 
  Country: None (occurrence: None)
  Receive Date: 20110509
  Receipt Date: 20110503
  Transmission Date: 20111010
  Serious: Yes (Life-Threatening, Hospitalization, Other)
  Sender: FDA-Public Use
  Company Number: FR-PFIZER INC-2011094410

PATIENT
  Age: 72 Year
  Sex: Male

DRUGS (4)
  1. CELL CEPT [Concomitant]
     Dosage: UNK
  2. RAPAMUNE [Suspect]
     Dosage: DOSE REDUCED, UNK
     Dates: start: 20100701, end: 20100803
  3. RAPAMUNE [Suspect]
     Dosage: DOSE INCREASED, UNK
     Route: 048
     Dates: start: 20100401
  4. RAPAMUNE [Suspect]
     Dosage: 2 MG, UNK
     Route: 048
     Dates: start: 20091113

REACTIONS (18)
  - ANAEMIA [None]
  - SKIN DISORDER [None]
  - LEGIONELLA INFECTION [None]
  - PSEUDOMONAS INFECTION [None]
  - INTERSTITIAL LUNG DISEASE [None]
  - EPISTAXIS [None]
  - OVERDOSE [None]
  - MOUTH ULCERATION [None]
  - RENAL FAILURE ACUTE [None]
  - ARTHRALGIA [None]
  - HYPERTRIGLYCERIDAEMIA [None]
  - PNEUMONIA LEGIONELLA [None]
  - KLEBSIELLA INFECTION [None]
  - HERPES SIMPLEX [None]
  - PRODUCTIVE COUGH [None]
  - CYTOMEGALOVIRUS INFECTION [None]
  - CANDIDIASIS [None]
  - SEPTIC SHOCK [None]
